FAERS Safety Report 14270038 (Version 2)
Quarter: 2017Q4

REPORT INFORMATION
  Report Type: Spontaneous
  Country: US (occurrence: US)
  Receive Date: 20171211
  Receipt Date: 20171229
  Transmission Date: 20180321
  Serious: No
  Sender: FDA-Public Use
  Company Number: US-SUNOVION-2017SUN005167

PATIENT
  Age: 19 Year
  Sex: Male
  Weight: 90.7 kg

DRUGS (4)
  1. HYDROXYZINE [Concomitant]
     Active Substance: HYDROXYZINE HYDROCHLORIDE
     Indication: PRODUCT USED FOR UNKNOWN INDICATION
     Dosage: UNK, QD
     Route: 048
  2. LATUDA [Suspect]
     Active Substance: LURASIDONE HYDROCHLORIDE
     Indication: ANXIETY
     Dosage: 60 MG, QD
     Route: 048
  3. LATUDA [Suspect]
     Active Substance: LURASIDONE HYDROCHLORIDE
     Dosage: 20 MG, QD
     Route: 048
  4. LATUDA [Suspect]
     Active Substance: LURASIDONE HYDROCHLORIDE
     Indication: DEPRESSION
     Dosage: 40 MG, QD
     Route: 048
     Dates: start: 2017

REACTIONS (5)
  - Off label use [Unknown]
  - Stress [Unknown]
  - Drug administration error [Unknown]
  - Insomnia [Recovered/Resolved]
  - Akathisia [Recovered/Resolved]
